FAERS Safety Report 17202064 (Version 12)
Quarter: 2021Q3

REPORT INFORMATION
  Report Type: Other
  Country: DE (occurrence: DE)
  Receive Date: 20191226
  Receipt Date: 20210802
  Transmission Date: 20211014
  Serious: Yes (Other)
  Sender: FDA-Public Use
  Company Number: DE-ROCHE-2452624

PATIENT
  Sex: Female

DRUGS (15)
  1. VOLON A (TRIAMCINOLONE ACETONIDE) [Suspect]
     Active Substance: TRIAMCINOLONE ACETONIDE
     Route: 037
     Dates: start: 20200324
  2. VOLON A (TRIAMCINOLONE ACETONIDE) [Suspect]
     Active Substance: TRIAMCINOLONE ACETONIDE
     Route: 037
     Dates: start: 20210202
  3. LIORESAL [Concomitant]
     Active Substance: BACLOFEN
     Dosage: 12.6MG ? 10MG ? 25MG
  4. OCREVUS [Suspect]
     Active Substance: OCRELIZUMAB
     Route: 042
     Dates: start: 20200922
  5. FAMPYRA [Concomitant]
     Active Substance: DALFAMPRIDINE
  6. OCREVUS [Suspect]
     Active Substance: OCRELIZUMAB
     Indication: SECONDARY PROGRESSIVE MULTIPLE SCLEROSIS
     Dosage: SECOND INFUSION: 16/MAY/2019
     Route: 042
     Dates: start: 20190502
  7. VOLON A (TRIAMCINOLONE ACETONIDE) [Suspect]
     Active Substance: TRIAMCINOLONE ACETONIDE
     Indication: PRODUCT USED FOR UNKNOWN INDICATION
     Dosage: 90?70MG (ALREADY 5 TIMES GIVEN)
     Route: 037
     Dates: start: 201904, end: 201908
  8. VOLON A (TRIAMCINOLONE ACETONIDE) [Suspect]
     Active Substance: TRIAMCINOLONE ACETONIDE
     Route: 037
     Dates: start: 20200114
  9. OCREVUS [Suspect]
     Active Substance: OCRELIZUMAB
     Route: 042
     Dates: start: 20191211
  10. COTRIM FORTE [Suspect]
     Active Substance: SULFAMETHOXAZOLE\TRIMETHOPRIM
     Indication: URINARY TRACT INFECTION
     Route: 065
     Dates: start: 20210712, end: 20210714
  11. VOLON A (TRIAMCINOLONE ACETONIDE) [Suspect]
     Active Substance: TRIAMCINOLONE ACETONIDE
     Route: 037
     Dates: start: 20200522
  12. VOLON A (TRIAMCINOLONE ACETONIDE) [Suspect]
     Active Substance: TRIAMCINOLONE ACETONIDE
     Route: 037
     Dates: start: 20201215
  13. OCREVUS [Suspect]
     Active Substance: OCRELIZUMAB
     Route: 042
     Dates: start: 20210712
  14. VOLON A (TRIAMCINOLONE ACETONIDE) [Suspect]
     Active Substance: TRIAMCINOLONE ACETONIDE
     Route: 037
     Dates: start: 201911
  15. SATIVEX [Concomitant]
     Active Substance: NABIXIMOLS

REACTIONS (18)
  - Oropharyngeal pain [Recovered/Resolved]
  - Smear cervix abnormal [Recovered/Resolved]
  - B-lymphocyte count decreased [Recovered/Resolved]
  - Rash [Recovered/Resolved]
  - Off label use [Unknown]
  - Gait disturbance [Not Recovered/Not Resolved]
  - Headache [Recovered/Resolved]
  - Subcutaneous abscess [Recovered/Resolved]
  - Fatigue [Recovered/Resolved]
  - Conjunctivitis [Recovered/Resolved]
  - Asthenia [Recovered/Resolved]
  - Dyspnoea [Recovered/Resolved]
  - Herpes zoster [Recovered/Resolved]
  - Urinary tract infection [Recovered/Resolved]
  - Neck pain [Recovered/Resolved]
  - Nasopharyngitis [Recovered/Resolved]
  - Nausea [Recovered/Resolved]
  - Staphylococcal infection [Recovered/Resolved]

NARRATIVE: CASE EVENT DATE: 20190502
